FAERS Safety Report 20280910 (Version 1)
Quarter: 2022Q1

REPORT INFORMATION
  Report Type: Spontaneous
  Country: US (occurrence: None)
  Receive Date: 20220102
  Receipt Date: 20220102
  Transmission Date: 20220424
  Serious: Yes (Other)
  Sender: FDA-Public Use
  Company Number: None

PATIENT
  Age: 49 Year
  Sex: Female
  Weight: 97.2 kg

DRUGS (6)
  1. FENTANYL TRANSDERMAL SYSTEM [Suspect]
     Active Substance: FENTANYL
     Indication: Pain management
     Dosage: OTHER QUANTITY : 1 PATCH(ES);?OTHER FREQUENCY : 48-72 HOURS;?
     Route: 061
     Dates: start: 20000101
  2. NARATRYPTAIN [Concomitant]
  3. PAMALOR [Concomitant]
  4. NERONTIN [Concomitant]
  5. MAGNESIUM [Concomitant]
     Active Substance: MAGNESIUM
  6. VITAMIN D [Concomitant]
     Active Substance: VITAMIN D NOS

REACTIONS (1)
  - Overdose [None]

NARRATIVE: CASE EVENT DATE: 20211227
